FAERS Safety Report 13296119 (Version 1)
Quarter: 2017Q1

REPORT INFORMATION
  Report Type: Spontaneous
  Country: PT (occurrence: PT)
  Receive Date: 20170304
  Receipt Date: 20170304
  Transmission Date: 20170428
  Serious: Yes (Hospitalization)
  Sender: FDA-Public Use
  Company Number: PT-BION-006039

PATIENT
  Age: 17 Year
  Sex: Male

DRUGS (2)
  1. VALPROIC ACID UNKNOWN [Suspect]
     Active Substance: VALPROIC ACID
     Indication: PSYCHOTIC DISORDER
  2. OLANZAPINE. [Concomitant]
     Active Substance: OLANZAPINE
     Indication: PSYCHOTIC DISORDER

REACTIONS (3)
  - Hyperprolinaemia [Unknown]
  - Aggression [Unknown]
  - Somnolence [Unknown]
